FAERS Safety Report 4894420-9 (Version None)
Quarter: 2006Q1

REPORT INFORMATION
  Report Type: 
  Country: None (occurrence: None)
  Receive Date: 20060127
  Receipt Date: 20050812
  Transmission Date: 20060701
  Serious: Yes (Hospitalization)
  Sender: FDA-Public Use
  Company Number: FR-ABBOTT-05P-056-0308461-00

PATIENT
  Age: 41 Year
  Sex: Female

DRUGS (8)
  1. HUMIRA [Suspect]
     Indication: RHEUMATOID ARTHRITIS
     Route: 058
     Dates: start: 20041204, end: 20050404
  2. HUMIRA [Suspect]
     Route: 058
     Dates: start: 20050603, end: 20051021
  3. HUMIRA [Suspect]
     Route: 058
     Dates: start: 20051204
  4. METHOTREXATE [Suspect]
     Indication: RHEUMATOID ARTHRITIS
     Dates: start: 19910601, end: 20050404
  5. PREDNISOLONE [Concomitant]
     Indication: DRUG USE FOR UNKNOWN INDICATION
     Dates: start: 20041101, end: 20050601
  6. METHOTREXATE [Concomitant]
     Indication: DRUG USE FOR UNKNOWN INDICATION
     Dates: start: 19910101, end: 20050401
  7. VALACYCLOVIR HCL [Concomitant]
     Indication: DRUG USE FOR UNKNOWN INDICATION
     Route: 048
     Dates: start: 20051204
  8. LEFLUNOMIDE [Concomitant]
     Indication: DRUG USE FOR UNKNOWN INDICATION
     Dates: start: 20040101, end: 20040501

REACTIONS (4)
  - CONDITION AGGRAVATED [None]
  - HERPES ZOSTER [None]
  - KERATITIS VIRAL [None]
  - POLYARTHRITIS [None]
